FAERS Safety Report 25318182 (Version 1)
Quarter: 2025Q2

REPORT INFORMATION
  Report Type: Spontaneous
  Country: US (occurrence: None)
  Receive Date: 20250514
  Receipt Date: 20250514
  Transmission Date: 20250716
  Serious: Yes (Hospitalization)
  Sender: FDA-CTU
  Company Number: None

PATIENT
  Age: 58 Year
  Sex: Female

DRUGS (7)
  1. TOBRAMYCIN [Suspect]
     Active Substance: TOBRAMYCIN
     Indication: Lung transplant
     Dosage: FREQUENCY : TWICE A DAY;?
     Route: 055
  2. ALBUTEROL SULFATE [Concomitant]
     Active Substance: ALBUTEROL SULFATE
  3. AZITHROMYCIN [Concomitant]
     Active Substance: AZITHROMYCIN
  4. CAYSTON INH 75MG [Concomitant]
  5. PULMO2YME SOL 1 MG/ML [Concomitant]
  6. SYMBICORT AER 160-4.5 [Concomitant]
  7. TOBRAMYCIN INJ 10MG/ML [Concomitant]

REACTIONS (2)
  - Lung disorder [None]
  - Condition aggravated [None]

NARRATIVE: CASE EVENT DATE: 20250417
